FAERS Safety Report 8431429-2 (Version None)
Quarter: 2012Q2

REPORT INFORMATION
  Report Type: 
  Country: None (occurrence: None)
  Receive Date: 20120607
  Receipt Date: 20120607
  Transmission Date: 20120825
  Serious: No
  Sender: FDA-Public Use
  Company Number: None

PATIENT
  Age: 66 Year
  Sex: Female
  Weight: 56.6996 kg

DRUGS (1)
  1. IBANDRONATE SODIUM [Suspect]
     Dosage: 150 MG ONCE A MONTH

REACTIONS (3)
  - PRODUCT FRIABLE [None]
  - TABLET PHYSICAL ISSUE [None]
  - PRODUCT QUALITY ISSUE [None]
